FAERS Safety Report 24141030 (Version 1)
Quarter: 2024Q3

REPORT INFORMATION
  Report Type: Spontaneous
  Country: US (occurrence: US)
  Receive Date: 20240726
  Receipt Date: 20240726
  Transmission Date: 20241017
  Serious: No
  Sender: Unknown Manufacturer
  Company Number: US-MIRUM PHARMACEUTICALS, INC.-US-MIR-24-00032

PATIENT
  Age: 9 Year
  Sex: Female
  Weight: 27.211 kg

DRUGS (2)
  1. LIVMARLI [Suspect]
     Active Substance: MARALIXIBAT CHLORIDE
     Indication: Alagille syndrome
     Dosage: 1 MILLILITER, QD
     Route: 048
     Dates: start: 20220211
  2. LIVMARLI [Suspect]
     Active Substance: MARALIXIBAT CHLORIDE
     Indication: Pruritus

REACTIONS (5)
  - Weight increased [Recovered/Resolved]
  - Mental disorder [Recovering/Resolving]
  - Anxiety [Recovering/Resolving]
  - Pruritus [Not Recovered/Not Resolved]
  - Drug ineffective [Unknown]

NARRATIVE: CASE EVENT DATE: 20230601
